FAERS Safety Report 13245935 (Version 1)
Quarter: 2017Q1

REPORT INFORMATION
  Report Type: Spontaneous
  Country: VN (occurrence: VN)
  Receive Date: 20170217
  Receipt Date: 20170217
  Transmission Date: 20170428
  Serious: Yes (Other)
  Sender: FDA-Public Use
  Company Number: VN-ROCHE-1893832

PATIENT
  Age: 68 Year
  Sex: Female
  Weight: 48 kg

DRUGS (2)
  1. XELODA [Suspect]
     Active Substance: CAPECITABINE
     Indication: COLON CANCER METASTATIC
     Route: 048
     Dates: start: 201605
  2. AVASTIN [Suspect]
     Active Substance: BEVACIZUMAB
     Indication: COLON CANCER METASTATIC
     Route: 042
     Dates: start: 201605, end: 201609

REACTIONS (5)
  - Hydronephrosis [Unknown]
  - Decreased appetite [Recovered/Resolved]
  - Fatigue [Recovered/Resolved]
  - Nephrolithiasis [Unknown]
  - Abdominal hernia [Unknown]

NARRATIVE: CASE EVENT DATE: 201609
